FAERS Safety Report 9835564 (Version 2)
Quarter: 2014Q1

REPORT INFORMATION
  Report Type: Spontaneous
  Country: PL (occurrence: PL)
  Receive Date: 20140122
  Receipt Date: 20140203
  Transmission Date: 20141002
  Serious: Yes (Life-Threatening, Hospitalization, Other)
  Sender: FDA-Public Use
  Company Number: PL-ACTAVIS-2014-00649

PATIENT
  Age: 17 Year
  Sex: Female
  Weight: 55 kg

DRUGS (3)
  1. BISOPROLOL (UNKNOWN) [Suspect]
     Indication: SUICIDE ATTEMPT
     Dosage: 125 MG, SINGLE
     Route: 048
  2. AMLODIPINE (UNKNOWN) [Suspect]
     Indication: SUICIDE ATTEMPT
     Dosage: 600 MG, SINGLE
     Route: 048
  3. CAPTOPRIL (UNKNOWN) [Suspect]
     Indication: SUICIDE ATTEMPT
     Dosage: 875 MG, SINGLE
     Route: 048

REACTIONS (13)
  - Cardiopulmonary failure [Recovered/Resolved]
  - Multi-organ failure [Recovered/Resolved]
  - Acute respiratory distress syndrome [Recovered/Resolved]
  - Metabolic acidosis [Recovered/Resolved]
  - Pulmonary oedema [Recovered/Resolved]
  - Altered state of consciousness [Recovered/Resolved]
  - Hyperglycaemia [Recovered/Resolved]
  - Anuria [Recovered/Resolved]
  - Electrocardiogram ST segment elevation [Recovered/Resolved]
  - Electrolyte imbalance [Recovered/Resolved]
  - Hypothermia [Recovered/Resolved]
  - Suicide attempt [Recovered/Resolved]
  - Overdose [Recovered/Resolved]
